FAERS Safety Report 24091022 (Version 1)
Quarter: 2024Q3

REPORT INFORMATION
  Report Type: Spontaneous
  Country: US (occurrence: US)
  Receive Date: 20240715
  Receipt Date: 20240715
  Transmission Date: 20241017
  Serious: No
  Sender: SANOFI AVENTIS
  Company Number: US-SA-SAC20240710000891

PATIENT
  Age: 63 Year
  Sex: Male
  Weight: 113 kg

DRUGS (1)
  1. DUPIXENT [Suspect]
     Active Substance: DUPILUMAB
     Dosage: 300 MG, QOW
     Route: 058
     Dates: start: 202307

REACTIONS (5)
  - Miliaria [Recovered/Resolved]
  - Sinusitis [Recovering/Resolving]
  - Paranasal sinus discomfort [Recovering/Resolving]
  - Upper-airway cough syndrome [Recovering/Resolving]
  - Sinus pain [Recovering/Resolving]

NARRATIVE: CASE EVENT DATE: 20240601
